FAERS Safety Report 9646654 (Version 2)
Quarter: 2014Q1

REPORT INFORMATION
  Report Type: Spontaneous
  Country: US (occurrence: US)
  Receive Date: 20131026
  Receipt Date: 20140203
  Transmission Date: 20141002
  Serious: No
  Sender: FDA-Public Use
  Company Number: US-009507513-1310USA010782

PATIENT
  Age: 38 Year
  Sex: Female
  Weight: 87.3 kg

DRUGS (1)
  1. NEXPLANON [Suspect]
     Indication: CONTRACEPTION
     Dosage: 68 MG, ONE ROD EVERY THREE YEARS; LEFT ARM
     Route: 059
     Dates: start: 20120420, end: 20130926

REACTIONS (3)
  - Device breakage [Recovered/Resolved]
  - Menorrhagia [Recovered/Resolved]
  - Device deployment issue [Recovered/Resolved]
